FAERS Safety Report 5232750-1 (Version None)
Quarter: 2007Q1

REPORT INFORMATION
  Report Type: 
  Country: None (occurrence: None)
  Receive Date: 20070206
  Receipt Date: 20070206
  Transmission Date: 20070707
  Serious: Yes (Life-Threatening, Disabling)
  Sender: FDA-Public Use
  Company Number: None

PATIENT
  Sex: Male
  Weight: 90.7194 kg

DRUGS (2)
  1. DOXAZOSIN MESYLATE [Suspect]
     Indication: GENITAL DISORDER MALE
     Dosage: 2 TABS NIGHTLY
     Dates: start: 20061128, end: 20070107
  2. DOXAZOSIN MESYLATE [Suspect]
     Indication: SWELLING
     Dosage: 2 TABS NIGHTLY
     Dates: start: 20061128, end: 20070107

REACTIONS (4)
  - FACE OEDEMA [None]
  - MUSCLE ATROPHY [None]
  - STOMACH DISCOMFORT [None]
  - VOMITING [None]
